FAERS Safety Report 4546275-X (Version None)
Quarter: 2005Q1

REPORT INFORMATION
  Report Type: 
  Country: None (occurrence: None)
  Receive Date: 20050106
  Receipt Date: 20041229
  Transmission Date: 20050727
  Serious: Yes (Disabling)
  Sender: FDA-Public Use
  Company Number: US-MERCK-0412USA03281

PATIENT
  Age: 33 Year
  Sex: Female

DRUGS (1)
  1. VIOXX [Suspect]
     Indication: ABDOMINAL PAIN UPPER
     Route: 048
     Dates: end: 20040901

REACTIONS (3)
  - ARTHRALGIA [None]
  - BONE PAIN [None]
  - HEADACHE [None]
